FAERS Safety Report 15022280 (Version 2)
Quarter: 2018Q2

REPORT INFORMATION
  Report Type: Spontaneous
  Country: US (occurrence: US)
  Receive Date: 20180618
  Receipt Date: 20180628
  Transmission Date: 20180711
  Serious: No
  Sender: FDA-Public Use
  Company Number: US-APOTEX-2018AP015368

PATIENT
  Age: 72 Year
  Sex: Male

DRUGS (2)
  1. VALIUM [Concomitant]
     Active Substance: DIAZEPAM
     Indication: ALCOHOL ABUSE
     Route: 065
  2. GABAPENTIN. [Suspect]
     Active Substance: GABAPENTIN
     Indication: ALCOHOL ABUSE
     Dosage: 300 MG, TID
     Route: 065

REACTIONS (1)
  - Urinary incontinence [Recovered/Resolved]
